FAERS Safety Report 12591537 (Version 1)
Quarter: 2016Q3

REPORT INFORMATION
  Report Type: Report from Study
  Country: JP (occurrence: JP)
  Receive Date: 20160726
  Receipt Date: 20160726
  Transmission Date: 20161109
  Serious: Yes (Other)
  Sender: FDA-Public Use
  Company Number: JP-ASTRAZENECA-2014SE58334

PATIENT
  Sex: Female

DRUGS (1)
  1. FASLODEX [Suspect]
     Active Substance: FULVESTRANT
     Indication: BREAST CANCER
     Dosage: 500 MG (TWO 5 ML INJECTIONS) ON DAYS 0, 14, 28 AND EVERY 28 DAYS THEREAFTER
     Route: 030

REACTIONS (1)
  - Psychiatric symptom [Unknown]
